FAERS Safety Report 5603161-1 (Version None)
Quarter: 2008Q1

REPORT INFORMATION
  Report Type: 
  Country: None (occurrence: None)
  Receive Date: 20080123
  Receipt Date: 20080116
  Transmission Date: 20080703
  Serious: Yes (Other)
  Sender: FDA-Public Use
  Company Number: 2008001484

PATIENT
  Sex: Male

DRUGS (1)
  1. LUBRIDERM DAILY MOISTURE (NO ACTIVE INGREDIENT) [Suspect]
     Indication: DRY SKIN
     Dosage: TOPICAL
     Route: 061

REACTIONS (3)
  - BLISTER [None]
  - HYPERSENSITIVITY [None]
  - RASH [None]
